FAERS Safety Report 25093553 (Version 3)
Quarter: 2025Q3

REPORT INFORMATION
  Report Type: Report from Study
  Country: US (occurrence: US)
  Receive Date: 20250319
  Receipt Date: 20250903
  Transmission Date: 20251020
  Serious: Yes (Other)
  Sender: CSL BEHRING
  Company Number: US-BEH-2025198742

PATIENT
  Age: 32 Year
  Sex: Female
  Weight: 84.46 kg

DRUGS (4)
  1. BERINERT [Suspect]
     Active Substance: HUMAN C1-ESTERASE INHIBITOR
     Indication: Hereditary angioedema
     Dosage: 5000 IU/KG, BIW
     Route: 058
  2. BERINERT [Suspect]
     Active Substance: HUMAN C1-ESTERASE INHIBITOR
     Indication: Prophylaxis
  3. BERINERT [Suspect]
     Active Substance: HUMAN C1-ESTERASE INHIBITOR
     Indication: Hereditary angioedema
     Route: 042
  4. BERINERT [Suspect]
     Active Substance: HUMAN C1-ESTERASE INHIBITOR
     Indication: Hereditary angioedema
     Route: 042

REACTIONS (13)
  - Hereditary angioedema [Unknown]
  - Hereditary angioedema [Unknown]
  - Arthralgia [Unknown]
  - Poor venous access [Unknown]
  - Hereditary angioedema [Unknown]
  - Underdose [Unknown]
  - Product dose omission issue [Unknown]
  - Inappropriate schedule of product administration [Unknown]
  - Feeling abnormal [Unknown]
  - Pain in extremity [Unknown]
  - Arthralgia [Unknown]
  - Intentional dose omission [Unknown]
  - Head injury [Unknown]

NARRATIVE: CASE EVENT DATE: 20241230
